FAERS Safety Report 10338703 (Version 1)
Quarter: 2014Q3

REPORT INFORMATION
  Report Type: Spontaneous
  Country: US (occurrence: US)
  Receive Date: 20140724
  Receipt Date: 20140724
  Transmission Date: 20150326
  Serious: Yes (Other)
  Sender: FDA-Public Use
  Company Number: US-ROXANE LABORATORIES, INC.-2014-BI-32842GD

PATIENT
  Age: 80 Year
  Sex: Male

DRUGS (1)
  1. PREDNISONE. [Suspect]
     Active Substance: PREDNISONE
     Indication: POLYMYALGIA RHEUMATICA
     Dosage: 5 MG
     Route: 065

REACTIONS (4)
  - Cryptosporidiosis infection [Recovered/Resolved]
  - Fatigue [Unknown]
  - Colitis microscopic [Recovered/Resolved]
  - Faecal incontinence [Unknown]
